FAERS Safety Report 5062287-4 (Version None)
Quarter: 2006Q3

REPORT INFORMATION
  Report Type: 
  Country: None (occurrence: None)
  Receive Date: 20060721
  Receipt Date: 20060707
  Transmission Date: 20061208
  Serious: Yes (Life-Threatening)
  Sender: FDA-Public Use
  Company Number: 8017365

PATIENT
  Age: 74 Year
  Sex: Male

DRUGS (4)
  1. KEPPRA [Suspect]
     Dosage: 500 MG 2/D PO
     Route: 048
     Dates: start: 20051201, end: 20051220
  2. KEPPRA [Suspect]
     Dates: start: 20051221
  3. TENORMIN [Concomitant]
  4. DICUMAROL [Concomitant]

REACTIONS (2)
  - DRUG INTERACTION [None]
  - INTERNATIONAL NORMALISED RATIO INCREASED [None]
